FAERS Safety Report 12662765 (Version 1)
Quarter: 2016Q3

REPORT INFORMATION
  Report Type: Spontaneous
  Country: US (occurrence: US)
  Receive Date: 20160818
  Receipt Date: 20160818
  Transmission Date: 20161109
  Serious: Yes (Other)
  Sender: FDA-Public Use
  Company Number: US-ASTRAZENECA-2016SE87212

PATIENT
  Age: 77 Year
  Sex: Male

DRUGS (5)
  1. EFFEINT [Concomitant]
     Dates: start: 20160731
  2. BRILINTA [Suspect]
     Active Substance: TICAGRELOR
     Indication: ACUTE CORONARY SYNDROME
     Dosage: 180.0MG ONCE/SINGLE ADMINISTRATION
     Route: 048
     Dates: start: 20160722
  3. PLAVIX [Concomitant]
     Active Substance: CLOPIDOGREL BISULFATE
     Dates: start: 201509
  4. BRILINTA [Suspect]
     Active Substance: TICAGRELOR
     Indication: ACUTE CORONARY SYNDROME
     Dosage: 90.0MG ONCE/SINGLE ADMINISTRATION
     Route: 048
     Dates: start: 20160722
  5. ASPIRIN. [Concomitant]
     Active Substance: ASPIRIN
     Dates: start: 201509

REACTIONS (2)
  - Electrocardiogram abnormal [Unknown]
  - Acute myocardial infarction [Unknown]
